FAERS Safety Report 9540723 (Version 2)
Quarter: 2013Q4

REPORT INFORMATION
  Report Type: Spontaneous
  Country: US (occurrence: US)
  Receive Date: 20130920
  Receipt Date: 20131008
  Transmission Date: 20140711
  Serious: Yes (Other)
  Sender: FDA-Public Use
  Company Number: US-PFIZER INC-2013270737

PATIENT
  Age: 42 Year
  Sex: Female
  Weight: 107.48 kg

DRUGS (5)
  1. LYRICA [Suspect]
     Indication: DIABETIC NEUROPATHY
     Dosage: 150 MG, 2X/DAY
     Route: 048
     Dates: start: 20130723, end: 20130916
  2. TYLENOL [Concomitant]
     Dosage: UNK
  3. GEODON [Concomitant]
     Dosage: 20 MG, UNK
  4. EFFEXOR [Concomitant]
     Dosage: UNK
  5. QUETIAPINE [Concomitant]
     Dosage: UNK

REACTIONS (6)
  - Suicidal behaviour [Recovering/Resolving]
  - Delusion [Recovering/Resolving]
  - Abnormal behaviour [Recovering/Resolving]
  - Hallucination, visual [Recovering/Resolving]
  - Depression [Recovering/Resolving]
  - Memory impairment [Recovering/Resolving]
